FAERS Safety Report 5134180-X (Version None)
Quarter: 2006Q4

REPORT INFORMATION
  Report Type: 
  Country: None (occurrence: None)
  Receive Date: 20061024
  Receipt Date: 20060118
  Transmission Date: 20070319
  Serious: Yes (Other)
  Sender: FDA-Public Use
  Company Number: US-SANOFI-SYNTHELABO-A03200600455

PATIENT
  Sex: Female
  Weight: 75.3 kg

DRUGS (6)
  1. AMITRIPTYLINE HCL [Concomitant]
     Dosage: UNK
     Route: 048
  2. LISINOPRIL [Concomitant]
     Dosage: UNK
     Route: 048
  3. DIGOXIN [Concomitant]
     Dosage: UNK
     Route: 048
  4. KLOR-CON [Concomitant]
     Dosage: UNK
     Route: 048
  5. LASIX [Concomitant]
     Dosage: UNK
     Route: 048
  6. AMBIEN [Suspect]
     Indication: INSOMNIA
     Dosage: UNK
     Route: 048
     Dates: start: 20010901, end: 20011101

REACTIONS (4)
  - AMNESIA [None]
  - ROAD TRAFFIC ACCIDENT [None]
  - SLEEP WALKING [None]
  - STUPOR [None]
